FAERS Safety Report 22621968 (Version 3)
Quarter: 2023Q2

REPORT INFORMATION
  Report Type: Report from Study
  Country: AR (occurrence: AR)
  Receive Date: 20230620
  Receipt Date: 20230627
  Transmission Date: 20230721
  Serious: Yes (Hospitalization, Other)
  Sender: FDA-Public Use
  Company Number: AR-ABBVIE-5285682

PATIENT
  Age: 63 Year
  Sex: Female

DRUGS (9)
  1. PLACEBO [Suspect]
     Active Substance: UNSPECIFIED INGREDIENT
     Indication: Rheumatoid arthritis
     Route: 058
     Dates: start: 20170608, end: 20171206
  2. PLACEBO [Suspect]
     Active Substance: UNSPECIFIED INGREDIENT
     Indication: Rheumatoid arthritis
     Route: 048
     Dates: start: 20170608, end: 20171206
  3. ACETAMINOPHEN [Concomitant]
     Active Substance: ACETAMINOPHEN
     Indication: Rheumatoid arthritis
     Dosage: TIME INTERVAL: AS NECESSARY
     Route: 048
     Dates: start: 20180215
  4. METHOTREXATE SODIUM [Concomitant]
     Active Substance: METHOTREXATE SODIUM
     Indication: Rheumatoid arthritis
     Route: 048
     Dates: start: 20220212
  5. METHOTREXATE SODIUM [Concomitant]
     Active Substance: METHOTREXATE SODIUM
     Indication: Rheumatoid arthritis
     Route: 048
     Dates: start: 20001012, end: 20220120
  6. FOLIC ACID [Concomitant]
     Active Substance: FOLIC ACID
     Indication: Prophylaxis
     Route: 048
     Dates: start: 20001012
  7. PREDNISONE [Concomitant]
     Active Substance: PREDNISONE
     Indication: Rheumatoid arthritis
     Route: 048
     Dates: start: 20140805, end: 20180214
  8. PREDNISONE [Concomitant]
     Active Substance: PREDNISONE
     Indication: Rheumatoid arthritis
     Route: 048
     Dates: start: 20180215
  9. UPADACITINIB [Suspect]
     Active Substance: UPADACITINIB
     Indication: Rheumatoid arthritis
     Route: 048
     Dates: start: 20171207

REACTIONS (1)
  - Abscess limb [Not Recovered/Not Resolved]

NARRATIVE: CASE EVENT DATE: 20230524
